FAERS Safety Report 20669345 (Version 1)
Quarter: 2022Q2

REPORT INFORMATION
  Report Type: Spontaneous
  Country: GB (occurrence: None)
  Receive Date: 20220404
  Receipt Date: 20220404
  Transmission Date: 20220721
  Serious: Yes (Other)
  Sender: FDA-Public Use
  Company Number: GB-Fresenius Kabi-FK202203857

PATIENT
  Age: 54 Year
  Sex: Female

DRUGS (2)
  1. OXALIPLATIN [Suspect]
     Active Substance: OXALIPLATIN
     Indication: Rectal adenocarcinoma
     Dosage: (CAPOX) REGIMEN FOR EIGHT CYCLES
     Dates: start: 201912
  2. CAPECITABINE [Suspect]
     Active Substance: CAPECITABINE
     Indication: Rectal adenocarcinoma
     Dosage: (CAPOX) REGIMEN FOR EIGHT CYCLES
     Dates: start: 201912

REACTIONS (2)
  - Amaurosis fugax [Recovered/Resolved]
  - Neuropathy peripheral [Recovered/Resolved]
